FAERS Safety Report 6361247-0 (Version None)
Quarter: 2009Q3

REPORT INFORMATION
  Report Type: 
  Country: None (occurrence: None)
  Receive Date: 20090918
  Receipt Date: 20090909
  Transmission Date: 20100115
  Serious: Yes (Other)
  Sender: FDA-Public Use
  Company Number: FR-PFIZER INC-2009266522

PATIENT
  Age: 62 Year

DRUGS (9)
  1. EPIRUBICIN HCL [Suspect]
     Indication: BREAST CANCER
     Dosage: UNK
     Route: 042
     Dates: start: 20090709, end: 20090730
  2. LETROZOLE [Suspect]
     Indication: BREAST CANCER
  3. EFFERALGAN [Suspect]
     Dosage: 1 G, 6X/DAY
     Route: 048
     Dates: start: 20090716, end: 20090730
  4. FLUOROURACIL [Concomitant]
     Dosage: UNK
     Dates: start: 20090709
  5. CYCLOPHOSPHAMIDE [Concomitant]
     Dosage: UNK
     Dates: start: 20090709
  6. ABUFENE [Concomitant]
  7. TRAMADOL HYDROCHLORIDE [Concomitant]
  8. BI-PROFENID [Concomitant]
  9. INEXIUM [Concomitant]

REACTIONS (3)
  - HEADACHE [None]
  - HEPATITIS [None]
  - JUGULAR VEIN THROMBOSIS [None]
